FAERS Safety Report 16398735 (Version 5)
Quarter: 2019Q3

REPORT INFORMATION
  Report Type: Spontaneous
  Country: US (occurrence: US)
  Receive Date: 20190606
  Receipt Date: 20190919
  Transmission Date: 20191004
  Serious: No
  Sender: FDA-Public Use
  Company Number: US-PFIZER INC-2018447267

PATIENT
  Age: 66 Year
  Sex: Female
  Weight: 92 kg

DRUGS (4)
  1. SKELAXIN [METAXALONE] [Concomitant]
     Dosage: 800 MG, 3-4 DAY
  2. LYRICA [Suspect]
     Active Substance: PREGABALIN
     Indication: COMPLEX REGIONAL PAIN SYNDROME
     Dosage: 300 MG, 2X/DAY (90 DAYS)
     Route: 048
  3. LYRICA [Suspect]
     Active Substance: PREGABALIN
     Indication: FIBROMYALGIA
     Dosage: 300 MG, 3X/DAY
  4. LYRICA [Suspect]
     Active Substance: PREGABALIN
     Dosage: 300 MG, 2X/DAY(300MG, 1 RED/WHITE OR GRAYISH CAPSULE BY MOUTH TWICE DAILY)
     Route: 048
     Dates: start: 2006

REACTIONS (3)
  - Overdose [Unknown]
  - Complex regional pain syndrome [Not Recovered/Not Resolved]
  - Condition aggravated [Not Recovered/Not Resolved]
